FAERS Safety Report 10552846 (Version 2)
Quarter: 2014Q4

REPORT INFORMATION
  Report Type: Spontaneous
  Country: GB (occurrence: GB)
  Receive Date: 20141029
  Receipt Date: 20141203
  Transmission Date: 20150529
  Serious: No
  Sender: FDA-Public Use
  Company Number: GB-009507513-1410GBR014052

PATIENT
  Age: 63 Year
  Sex: Male

DRUGS (1)
  1. SIMVASTATIN. [Suspect]
     Active Substance: SIMVASTATIN
     Indication: BLOOD CHOLESTEROL INCREASED
     Dosage: DOSE REPORTED AS 25(UNITS NOT SPECIFIED)
     Route: 048
     Dates: start: 2007

REACTIONS (11)
  - Psychiatric symptom [Unknown]
  - Self esteem decreased [Unknown]
  - Myalgia [Unknown]
  - Tenderness [Unknown]
  - Social avoidant behaviour [Unknown]
  - Quality of life decreased [Unknown]
  - Asthenia [Unknown]
  - Activities of daily living impaired [Unknown]
  - Impaired work ability [Unknown]
  - Social fear [Unknown]
  - Frustration [Unknown]
